FAERS Safety Report 7720460-8 (Version None)
Quarter: 2011Q3

REPORT INFORMATION
  Report Type: 
  Country: None (occurrence: None)
  Receive Date: 20110831
  Receipt Date: 20110818
  Transmission Date: 20111222
  Serious: Yes (Other)
  Sender: FDA-Public Use
  Company Number: JP-JHP PHARMACEUTICALS, LLC-JHP201100409

PATIENT
  Age: 11 Year
  Sex: Male

DRUGS (1)
  1. DANTRIUM [Suspect]
     Dosage: 45 MG, DAILY
     Route: 048

REACTIONS (2)
  - HYDRONEPHROSIS [None]
  - DYSURIA [None]
